FAERS Safety Report 11394987 (Version 1)
Quarter: 2015Q3

REPORT INFORMATION
  Report Type: Spontaneous
  Country: FR (occurrence: FR)
  Receive Date: 20150819
  Receipt Date: 20150819
  Transmission Date: 20151125
  Serious: Yes (Other)
  Sender: FDA-Public Use
  Company Number: FR-HOSPIRA-2126260

PATIENT
  Age: 12 Year
  Sex: Male

DRUGS (1)
  1. PAMIDRONIC ACID [Suspect]
     Active Substance: PAMIDRONIC ACID
     Indication: OSTEOPOROSIS
     Dosage: 22 MG/ 250 ML IN 3 HOURS
     Route: 041

REACTIONS (1)
  - Pancreatitis acute [Unknown]
